FAERS Safety Report 12847482 (Version 1)
Quarter: 2016Q4

REPORT INFORMATION
  Report Type: Spontaneous
  Country: JP (occurrence: JP)
  Receive Date: 20161014
  Receipt Date: 20161014
  Transmission Date: 20170207
  Serious: Yes (Other)
  Sender: FDA-Public Use
  Company Number: JP-PFIZER INC-2016473870

PATIENT
  Age: 70 Year
  Sex: Male

DRUGS (1)
  1. CABASER 1.0MG [Suspect]
     Active Substance: CABERGOLINE
     Indication: PARKINSON^S DISEASE
     Dosage: 3 MG, DAILY
     Route: 048

REACTIONS (2)
  - Personality change [Unknown]
  - Suicidal ideation [Unknown]
